FAERS Safety Report 7201327-0 (Version None)
Quarter: 2010Q4

REPORT INFORMATION
  Report Type: 
  Country: None (occurrence: None)
  Receive Date: 20101229
  Receipt Date: 20101214
  Transmission Date: 20110411
  Serious: Yes (Other)
  Sender: FDA-Public Use
  Company Number: US-RANBAXY-2010RR-40716

PATIENT
  Sex: Female

DRUGS (9)
  1. PREDNISOLONE [Suspect]
     Indication: MULTIPLE SCLEROSIS
     Dosage: 20 MG, UNK
     Route: 048
     Dates: start: 20070517
  2. PREDNISOLONE [Suspect]
     Dosage: 20 MG, UNK
     Dates: start: 20070608
  3. PREDNISOLONE [Suspect]
     Dosage: 20 MG, UNK
     Dates: start: 20080529
  4. LEVAQUIN [Suspect]
     Indication: CYSTITIS
     Dosage: UNK
     Route: 048
     Dates: start: 20070514, end: 20070824
  5. LEVAQUIN [Suspect]
     Indication: SINUSITIS
     Dosage: UNK
     Dates: start: 20080602, end: 20080612
  6. LEVAQUIN [Suspect]
     Indication: URINARY TRACT INFECTION
  7. CIPRO [Suspect]
     Indication: URINARY TRACT INFECTION
     Dosage: UNK
     Route: 048
     Dates: start: 20070320, end: 20070325
  8. CIPROFLOXACIN [Suspect]
     Indication: URINARY TRACT INFECTION
     Dosage: 500 MG, BID
     Route: 048
     Dates: start: 20070612, end: 20070617
  9. CIPROFLOXACIN [Suspect]
     Dosage: UNK
     Dates: start: 20080710, end: 20080717

REACTIONS (3)
  - MENISCUS LESION [None]
  - TENDON DISORDER [None]
  - TENDON RUPTURE [None]
